FAERS Safety Report 8334295 (Version 2)
Quarter: 2013Q2

REPORT INFORMATION
  Report Type: Spontaneous
  Country: US (occurrence: None)
  Receive Date: 20111130
  Receipt Date: 20120731
  Transmission Date: 20140414
  Serious: Yes (Other)
  Sender: FDA-Public Use
  Company Number: US201107004482

PATIENT
  Age: 59 Year
  Sex: Female
  Weight: 78 kg

DRUGS (15)
  1. BYETTA [Suspect]
  2. GLIPIZIDE (GLIPIZIDE) [Concomitant]
  3. SIMVASTATIN (SIMVASTATIN) [Concomitant]
  4. CLOBETASOL PROPIONATE (CLOBETASOL PROPIONATE) [Concomitant]
  5. BLEPHAMIDE (PREDNISOLONE ACETATE, SULFACETAMIDE SODIUM) [Concomitant]
  6. TOBRADEX (DEXAMETHASONE, TOBRAMYCIN) [Concomitant]
  7. DERMOTIC (FLUOCINOLONE ACETONIDE) [Concomitant]
  8. LEVOTHYROXINE SODIUM (LEVOTHYROXINE SODIUM) [Concomitant]
  9. MUPIROCIN (MUPIROCIN) [Concomitant]
  10. METFORMIN (METFORMIN) [Concomitant]
  11. HYDROXYZINE HCL (HYDROXYZINE HYDROCHLORIDE) [Concomitant]
  12. RAPTIVA (EFALIZUMAB) [Concomitant]
  13. DOVONEX (CALCIPOTRIOL) [Concomitant]
  14. SALEX (SODIUM CHLORIDE) [Concomitant]
  15. TACLONEX (BETAMETHASONE DIPROPIONATE, CALCIPOTRIOL) [Concomitant]

REACTIONS (1)
  - PANCREATITIS [None]
